FAERS Safety Report 10234152 (Version 1)
Quarter: 2014Q2

REPORT INFORMATION
  Report Type: Spontaneous
  Country: IN (occurrence: IN)
  Receive Date: 20140612
  Receipt Date: 20140612
  Transmission Date: 20141212
  Serious: Yes (Other)
  Sender: FDA-Public Use
  Company Number: PHHY2014IN069139

PATIENT
  Age: 18 Year
  Sex: Female

DRUGS (5)
  1. VALPROIC ACID [Suspect]
     Indication: BIPOLAR DISORDER
     Dosage: 1 G, PER DAY
  2. RISPERIDONE [Suspect]
     Indication: BIPOLAR DISORDER
     Dosage: 3 MG, PER DAY
  3. ARIPIPRAZOLE [Suspect]
     Indication: BIPOLAR DISORDER
  4. LITHIUM [Suspect]
     Indication: BIPOLAR DISORDER
     Dosage: 90 MG, PER DAY
  5. QUETIAPINE [Concomitant]
     Dosage: 200 MG, PER DAY

REACTIONS (8)
  - Extrapyramidal disorder [Unknown]
  - Hyperprolactinaemia [Unknown]
  - Oligomenorrhoea [Unknown]
  - Resting tremor [Unknown]
  - Cogwheel rigidity [Unknown]
  - Blood prolactin increased [Unknown]
  - Weight increased [Unknown]
  - Therapeutic response decreased [Unknown]
